FAERS Safety Report 9109587 (Version 4)
Quarter: 2017Q2

REPORT INFORMATION
  Report Type: Spontaneous
  Country: JP (occurrence: JP)
  Receive Date: 20130222
  Receipt Date: 20170607
  Transmission Date: 20170830
  Serious: Yes (Death, Life-Threatening, Hospitalization, Other)
  Sender: FDA-Public Use
  Company Number: JP-MILLENNIUM PHARMACEUTICALS, INC.-2013-01450

PATIENT
  Age: 71 Year
  Sex: Male
  Weight: 62 kg

DRUGS (2)
  1. DEXAMETHASONE. [Suspect]
     Active Substance: DEXAMETHASONE
     Indication: AMYLOIDOSIS
     Dosage: 39.6 MG, UNK
     Route: 042
     Dates: start: 20130111, end: 20130211
  2. VELCADE [Suspect]
     Active Substance: BORTEZOMIB
     Indication: AMYLOIDOSIS
     Dosage: 2.14 MG, UNK
     Route: 058
     Dates: start: 20130111, end: 20130211

REACTIONS (10)
  - Renal failure [Unknown]
  - Abdominal distension [Unknown]
  - Product use in unapproved indication [Unknown]
  - Decreased appetite [Unknown]
  - Off label use [Unknown]
  - Congestive cardiomyopathy [Fatal]
  - Circulatory collapse [Unknown]
  - Respiratory failure [Unknown]
  - Cardiac arrest [Fatal]
  - Fatigue [Unknown]

NARRATIVE: CASE EVENT DATE: 20130216
